FAERS Safety Report 5780102-8 (Version None)
Quarter: 2008Q2

REPORT INFORMATION
  Report Type: 
  Country: None (occurrence: None)
  Receive Date: 20080620
  Receipt Date: 20080617
  Transmission Date: 20081010
  Serious: Yes (Hospitalization)
  Sender: FDA-Public Use
  Company Number: US-RB-001964-08

PATIENT
  Age: 43 Year
  Sex: Male

DRUGS (1)
  1. SUBOXONE [Suspect]
     Dosage: DOSE UNKNOWN
     Route: 060
     Dates: end: 20080615

REACTIONS (1)
  - BURNS SECOND DEGREE [None]
